FAERS Safety Report 9999397 (Version 1)
Quarter: 2014Q1

REPORT INFORMATION
  Report Type: Spontaneous
  Country: US (occurrence: None)
  Receive Date: 20140311
  Receipt Date: 20140311
  Transmission Date: 20141002
  Serious: Yes (Other)
  Sender: FDA-Public Use
  Company Number: None

PATIENT
  Age: 69 Year
  Sex: Male
  Weight: 110.6 kg

DRUGS (1)
  1. SPIRONOLACTONE [Suspect]
     Route: 048
     Dates: start: 20101115, end: 20130913

REACTIONS (2)
  - Hyperkalaemia [None]
  - Dehydration [None]
